FAERS Safety Report 13644922 (Version 1)
Quarter: 2017Q2

REPORT INFORMATION
  Report Type: Spontaneous
  Country: US (occurrence: US)
  Receive Date: 20170612
  Receipt Date: 20170612
  Transmission Date: 20170830
  Serious: No
  Sender: FDA-Public Use
  Company Number: US-ROCHE-757038

PATIENT
  Sex: Male

DRUGS (1)
  1. XELODA [Suspect]
     Active Substance: CAPECITABINE
     Indication: COLORECTAL CANCER METASTATIC
     Dosage: FOR 14 DAYS
     Route: 048

REACTIONS (5)
  - Dysgeusia [Unknown]
  - Diarrhoea [Unknown]
  - Nausea [Unknown]
  - Decreased appetite [Unknown]
  - Hair colour changes [Unknown]
